FAERS Safety Report 16125344 (Version 1)
Quarter: 2019Q1

REPORT INFORMATION
  Report Type: Spontaneous
  Country: DE (occurrence: DE)
  Receive Date: 20190327
  Receipt Date: 20190327
  Transmission Date: 20190418
  Serious: Yes (Other)
  Sender: FDA-Public Use
  Company Number: PHHY2019DE065803

PATIENT
  Age: 82 Year
  Sex: Female

DRUGS (1)
  1. DEXASINE [Suspect]
     Active Substance: DEXAMETHASONE SODIUM PHOSPHATE
     Indication: POSTOPERATIVE CARE
     Route: 065

REACTIONS (2)
  - Post procedural haemorrhage [Not Recovered/Not Resolved]
  - Cyst [Unknown]
